FAERS Safety Report 11574005 (Version 2)
Quarter: 2015Q4

REPORT INFORMATION
  Report Type: Report from Study
  Country: US (occurrence: US)
  Receive Date: 20150930
  Receipt Date: 20151130
  Transmission Date: 20160304
  Serious: No
  Sender: FDA-Public Use
  Company Number: US-AMGEN-USASP2015100262

PATIENT
  Age: 53 Year
  Sex: Female

DRUGS (1)
  1. ENBREL [Suspect]
     Active Substance: ETANERCEPT
     Indication: RHEUMATOID ARTHRITIS
     Dosage: 50 MG, QWK
     Route: 065
     Dates: start: 201509

REACTIONS (13)
  - Abdominal pain upper [Unknown]
  - Injection site pain [Recovered/Resolved]
  - Musculoskeletal pain [Recovering/Resolving]
  - Musculoskeletal discomfort [Recovering/Resolving]
  - Lacrimation increased [Unknown]
  - Headache [Unknown]
  - Nausea [Unknown]
  - Arthralgia [Recovering/Resolving]
  - Diarrhoea [Unknown]
  - Hypersensitivity [Unknown]
  - Pain in extremity [Unknown]
  - Fatigue [Unknown]
  - Vomiting [Unknown]

NARRATIVE: CASE EVENT DATE: 2015
